FAERS Safety Report 21082179 (Version 1)
Quarter: 2022Q3

REPORT INFORMATION
  Report Type: Spontaneous
  Country: US (occurrence: None)
  Receive Date: 20220714
  Receipt Date: 20220714
  Transmission Date: 20221027
  Serious: Yes (Life-Threatening, Hospitalization)
  Sender: FDA-Public Use
  Company Number: None

PATIENT
  Age: 71 Year
  Sex: Male

DRUGS (3)
  1. WARFARIN SODIUM [Suspect]
     Active Substance: WARFARIN SODIUM
     Indication: Cerebrovascular accident
     Dates: start: 20220617, end: 20220630
  2. ENOXAPARIN [Suspect]
     Active Substance: ENOXAPARIN
     Indication: Cerebrovascular accident
     Dosage: FREQUENCY : TWICE A DAY;?
     Route: 058
     Dates: start: 20220617, end: 20220630
  3. ENOXAPARIN [Suspect]
     Active Substance: ENOXAPARIN

REACTIONS (11)
  - Coagulopathy [None]
  - Acute kidney injury [None]
  - Hypotension [None]
  - Chest wall haematoma [None]
  - International normalised ratio increased [None]
  - Chest pain [None]
  - Respiratory failure [None]
  - Hypertension [None]
  - Obstructive sleep apnoea syndrome [None]
  - Intracardiac thrombus [None]
  - Cerebrovascular accident [None]

NARRATIVE: CASE EVENT DATE: 20220630
